FAERS Safety Report 18051930 (Version 2)
Quarter: 2021Q2

REPORT INFORMATION
  Report Type: Spontaneous
  Country: CA (occurrence: CA)
  Receive Date: 20200721
  Receipt Date: 20210628
  Transmission Date: 20210717
  Serious: Yes (Other)
  Sender: FDA-Public Use
  Company Number: CA-TEVA-2020-CA-1802761

PATIENT
  Age: 48 Year
  Sex: Female

DRUGS (2)
  1. ACYCLOVIR. [Suspect]
     Active Substance: ACYCLOVIR
     Indication: ENCEPHALITIS VIRAL
     Dosage: 20 MG/KG DAILY;
  2. ACYCLOVIR. [Suspect]
     Active Substance: ACYCLOVIR

REACTIONS (1)
  - Acute kidney injury [Unknown]
